FAERS Safety Report 14884708 (Version 1)
Quarter: 2018Q2

REPORT INFORMATION
  Report Type: Spontaneous
  Country: JP (occurrence: JP)
  Receive Date: 20180511
  Receipt Date: 20180511
  Transmission Date: 20180711
  Serious: Yes (Hospitalization)
  Sender: FDA-Public Use
  Company Number: JP-AVADEL LEGACY PHARMACEUTICALS, LLC-2018AVA00048

PATIENT
  Age: 28 Year
  Sex: Male

DRUGS (1)
  1. EPHEDRINE SULFATE. [Suspect]
     Active Substance: EPHEDRINE SULFATE

REACTIONS (6)
  - Cerebral infarction [Recovered/Resolved]
  - Posterior reversible encephalopathy syndrome [Recovered/Resolved]
  - Overdose [Recovered/Resolved]
  - Paraplegia [Recovered/Resolved]
  - Reversible cerebral vasoconstriction syndrome [Recovered/Resolved]
  - Agraphia [Unknown]
